FAERS Safety Report 16217135 (Version 4)
Quarter: 2019Q2

REPORT INFORMATION
  Report Type: Spontaneous
  Country: PT (occurrence: PT)
  Receive Date: 20190419
  Receipt Date: 20190524
  Transmission Date: 20190711
  Serious: Yes (Hospitalization, Other)
  Sender: FDA-Public Use
  Company Number: PT-AUROBINDO-AUR-APL-2019-022118

PATIENT

DRUGS (4)
  1. AMOXICILLIN+CLAVULANIC ACID [Suspect]
     Active Substance: AMOXICILLIN\CLAVULANIC ACID
     Indication: ABDOMINAL WALL HAEMATOMA
     Dosage: UNK
     Route: 065
     Dates: start: 201312, end: 201312
  2. OXALIPLATIN. [Suspect]
     Active Substance: OXALIPLATIN
     Indication: ADENOCARCINOMA OF COLON
     Dosage: UNK
     Route: 065
     Dates: start: 201303, end: 201306
  3. LEUCOVORIN. [Concomitant]
     Active Substance: LEUCOVORIN
     Indication: ADENOCARCINOMA OF COLON
     Dosage: UNK
     Route: 065
     Dates: start: 201303, end: 201306
  4. 5-FLUOROURACIL [Concomitant]
     Active Substance: FLUOROURACIL
     Indication: ADENOCARCINOMA OF COLON
     Dosage: UNK
     Route: 065
     Dates: start: 201303, end: 201306

REACTIONS (19)
  - Portal hypertension [Unknown]
  - Gamma-glutamyltransferase increased [Unknown]
  - Alanine aminotransferase increased [Unknown]
  - Hepatitis [Unknown]
  - Jaundice [Unknown]
  - Blood pressure increased [Unknown]
  - Splenomegaly [Unknown]
  - Blood alkaline phosphatase increased [Unknown]
  - Off label use [Recovered/Resolved]
  - Product use in unapproved indication [Unknown]
  - Drug-induced liver injury [Recovered/Resolved]
  - Abnormal faeces [Unknown]
  - Aspartate aminotransferase increased [Unknown]
  - Body temperature decreased [Unknown]
  - Cholestasis [Unknown]
  - Chromaturia [Unknown]
  - Pruritus [Unknown]
  - Portal tract inflammation [Unknown]
  - Jaundice cholestatic [Unknown]
